FAERS Safety Report 19256012 (Version 1)
Quarter: 2021Q2

REPORT INFORMATION
  Report Type: Spontaneous
  Country: US (occurrence: US)
  Receive Date: 20210513
  Receipt Date: 20210513
  Transmission Date: 20210717
  Serious: Yes (Hospitalization, Other)
  Sender: FDA-Public Use
  Company Number: US-LUPIN PHARMACEUTICALS INC.-2021-06825

PATIENT
  Age: 15 Year
  Sex: Female

DRUGS (2)
  1. MISOPROSTOL. [Suspect]
     Active Substance: MISOPROSTOL
     Indication: ABORTION INDUCED
     Dosage: 4 DOSAGE FORM, TID?PILLS
     Route: 048
  2. MISOPROSTOL. [Suspect]
     Active Substance: MISOPROSTOL
     Indication: INTENTIONAL PRODUCT MISUSE

REACTIONS (3)
  - Retained products of conception [Recovered/Resolved]
  - Intentional product misuse [Unknown]
  - Abortion infected [Recovered/Resolved]
